FAERS Safety Report 7998088-4 (Version None)
Quarter: 2011Q4

REPORT INFORMATION
  Report Type: 
  Country: None (occurrence: None)
  Receive Date: 20111221
  Receipt Date: 20110112
  Transmission Date: 20120403
  Serious: No
  Sender: FDA-Public Use
  Company Number: US-GLAXOSMITHKLINE-A0905443A

PATIENT
  Age: 70 Year
  Sex: Female

DRUGS (8)
  1. POTASSIUM [Concomitant]
  2. VITAMIN B-12 [Concomitant]
  3. CALCIUM [Concomitant]
  4. RED YEAST RICE [Concomitant]
  5. LOVAZA [Suspect]
     Indication: BLOOD TRIGLYCERIDES INCREASED
     Dosage: 4CAP PER DAY
     Route: 048
     Dates: start: 20080101
  6. HYDROCHLOROTHIAZIDE [Concomitant]
  7. LEVOXYL [Concomitant]
  8. MULTI-VITAMIN [Concomitant]

REACTIONS (7)
  - DYSSTASIA [None]
  - PAIN IN EXTREMITY [None]
  - ARTHRALGIA [None]
  - FEELING ABNORMAL [None]
  - NAUSEA [None]
  - FEELING COLD [None]
  - DRUG INEFFECTIVE [None]
